FAERS Safety Report 8917648 (Version 7)
Quarter: 2015Q2

REPORT INFORMATION
  Report Type: Spontaneous
  Country: US (occurrence: US)
  Receive Date: 20121119
  Receipt Date: 20150617
  Transmission Date: 20150821
  Serious: Yes (Hospitalization, Other)
  Sender: FDA-Public Use
  Company Number: US-009507513-1211USA006982

PATIENT
  Sex: Female
  Weight: 74.83 kg

DRUGS (5)
  1. FOSAMAX [Suspect]
     Active Substance: ALENDRONATE SODIUM
     Indication: BONE DENSITY DECREASED
     Dosage: 70 MG, UNK
     Route: 048
  2. FOSAMAX PLUS D [Suspect]
     Active Substance: ALENDRONATE SODIUM\CHOLECALCIFEROL
     Indication: BONE DENSITY DECREASED
     Dosage: 70 MG, UNK
     Route: 048
     Dates: start: 2007
  3. FOSAMAX [Suspect]
     Active Substance: ALENDRONATE SODIUM
     Dosage: UNK
     Route: 048
  4. ALENDRONATE SODIUM. [Suspect]
     Active Substance: ALENDRONATE SODIUM
     Dosage: 70 MG, UNK
     Route: 048
     Dates: start: 2010
  5. ALENDRONATE SODIUM. [Suspect]
     Active Substance: ALENDRONATE SODIUM
     Indication: BONE DENSITY DECREASED
     Dosage: 70 MG, UNK
     Route: 048
     Dates: start: 2009

REACTIONS (41)
  - Stress fracture [Unknown]
  - Stress fracture [Recovered/Resolved]
  - Arthritis [Unknown]
  - Fall [Unknown]
  - Bursitis [Unknown]
  - Anaemia postoperative [Unknown]
  - Hypoproteinaemia [Unknown]
  - Drug ineffective [Unknown]
  - Intramedullary rod insertion [Recovering/Resolving]
  - Costochondritis [Unknown]
  - Limb deformity [Not Recovered/Not Resolved]
  - Musculoskeletal discomfort [Unknown]
  - Skin cancer [Unknown]
  - Appendicectomy [Unknown]
  - Femoroacetabular impingement [Unknown]
  - Musculoskeletal chest pain [Unknown]
  - Muscle strain [Unknown]
  - Sinus disorder [Not Recovered/Not Resolved]
  - Colitis [Unknown]
  - Hyperalbuminaemia [Unknown]
  - Dizziness [Unknown]
  - Femur fracture [Recovered/Resolved]
  - Ankle fracture [Unknown]
  - Stress urinary incontinence [Unknown]
  - Asthma [Unknown]
  - Arthralgia [Unknown]
  - Arthralgia [Unknown]
  - Femur fracture [Unknown]
  - Femur fracture [Unknown]
  - Bursitis [Unknown]
  - Foot fracture [Recovered/Resolved]
  - Hypercholesterolaemia [Unknown]
  - Osteoporosis [Unknown]
  - Oedema peripheral [Unknown]
  - Intramedullary rod insertion [Unknown]
  - Skin cancer [Unknown]
  - Foot fracture [Unknown]
  - Skin cancer [Unknown]
  - Bone disorder [Unknown]
  - Osteoarthritis [Unknown]
  - Arthralgia [Recovering/Resolving]

NARRATIVE: CASE EVENT DATE: 200004
